FAERS Safety Report 18506294 (Version 2)
Quarter: 2020Q4

REPORT INFORMATION
  Report Type: Report from Study
  Country: CN (occurrence: CN)
  Receive Date: 20201116
  Receipt Date: 20201120
  Transmission Date: 20210114
  Serious: Yes (Life-Threatening)
  Sender: FDA-Public Use
  Company Number: CN-SA-2020SA315851

PATIENT

DRUGS (7)
  1. ONDANSETRON HYDROCHLORIDE. [Concomitant]
     Active Substance: ONDANSETRON HYDROCHLORIDE
     Indication: PROPHYLAXIS OF NAUSEA AND VOMITING
     Dosage: 8 MG, Q3W, INJECTION,  ADMINISTRATION: INFUSION
     Route: 042
     Dates: start: 20201030, end: 20201031
  2. DEXAMETHASONE SODIUM PHOSPHATE. [Concomitant]
     Active Substance: DEXAMETHASONE SODIUM PHOSPHATE
     Indication: PROPHYLAXIS
     Dosage: 5 MG, Q3W, INJECTION,  ADMINISTRATION: INFUSION
     Route: 040
     Dates: start: 20201030, end: 20201031
  3. DEXAMETHASONE ACETATE [Concomitant]
     Active Substance: DEXAMETHASONE ACETATE
     Indication: PROPHYLAXIS
     Dosage: 7.5 MG, Q3W,  ADMINISTRATION: INFUSION
     Route: 048
     Dates: start: 20201029, end: 20201029
  4. ONDANSETRON HYDROCHLORIDE. [Concomitant]
     Active Substance: ONDANSETRON HYDROCHLORIDE
     Indication: PROPHYLAXIS OF NAUSEA AND VOMITING
  5. OMEPRAZOLE. [Concomitant]
     Active Substance: OMEPRAZOLE
     Indication: GASTROINTESTINAL DISORDER PROPHYLAXIS
     Dosage: 40 MG, Q3W,  ADMINISTRATION: INFUSION
     Route: 042
     Dates: start: 20201030, end: 20201031
  6. RECOMBINANT HUMAN GRANULOCYTE COLONY STIMULATING FACTOR [Concomitant]
     Active Substance: GRANULOCYTE COLONY-STIMULATING FACTOR NOS
     Indication: AGRANULOCYTOSIS
     Dosage: 150 UG (150 UG/0.5ML/VIAL), BID
     Dates: start: 20201105, end: 20201106
  7. DOCETAXEL. [Suspect]
     Active Substance: DOCETAXEL
     Indication: BREAST CANCER FEMALE
     Dosage: 120 MG, Q3W, INJECTION, ADMINISTRATION: INFUSION
     Route: 041
     Dates: start: 20201030, end: 20201030

REACTIONS (1)
  - Febrile neutropenia [Recovered/Resolved]

NARRATIVE: CASE EVENT DATE: 20201106
